FAERS Safety Report 8156468-0 (Version None)
Quarter: 2012Q1

REPORT INFORMATION
  Report Type: 
  Country: None (occurrence: None)
  Receive Date: 20120221
  Receipt Date: 20120221
  Transmission Date: 20120608
  Serious: Yes (Other)
  Sender: FDA-Public Use
  Company Number: None

PATIENT
  Sex: Female

DRUGS (1)
  1. FORTEO [Suspect]
     Dosage: 600MCG/2.4ML SC INJECT 20MCG SUBCUTANEOUSLY EVERY DAY AS DIRECTED ^EXPIRES 28 DAYS AFTER OPENING^
     Route: 058

REACTIONS (1)
  - RASH [None]
